FAERS Safety Report 16244354 (Version 2)
Quarter: 2020Q3

REPORT INFORMATION
  Report Type: Report from Study
  Country: US (occurrence: US)
  Receive Date: 20190426
  Receipt Date: 20190510
  Transmission Date: 20201104
  Serious: Yes (Hospitalization)
  Sender: FDA-Public Use
  Company Number: US-JNJFOC-20190438183

PATIENT
  Age: 34 Year
  Sex: Male
  Weight: 123.4 kg

DRUGS (7)
  1. INVOKANA [Concomitant]
     Active Substance: CANAGLIFLOZIN
     Dates: start: 20171111
  2. CHRONULAC [Concomitant]
     Active Substance: LACTULOSE
     Indication: CONSTIPATION
     Dosage: 24 UNIT
     Route: 048
     Dates: start: 20181030
  3. IBRUTINIB [Suspect]
     Active Substance: IBRUTINIB
     Indication: B-CELL LYMPHOMA
     Route: 048
     Dates: start: 20190430
  4. DULAGLUTIDE. [Concomitant]
     Active Substance: DULAGLUTIDE
     Route: 058
     Dates: start: 20160826
  5. DOCUSATE SODIUM W/SENNOSIDE A+B [Concomitant]
     Active Substance: DOCUSATE SODIUM\SENNOSIDES A AND B
     Indication: DIARRHOEA
     Dosage: 24 UNIT
     Route: 048
     Dates: start: 20181030
  6. IBRUTINIB [Suspect]
     Active Substance: IBRUTINIB
     Indication: B-CELL LYMPHOMA
     Route: 048
     Dates: start: 20150408, end: 20190412
  7. HUMALOG [Concomitant]
     Active Substance: INSULIN LISPRO
     Dosage: 24 UNIT
     Route: 058
     Dates: start: 20180920

REACTIONS (1)
  - Febrile neutropenia [Recovered/Resolved]

NARRATIVE: CASE EVENT DATE: 20190412
